FAERS Safety Report 7182603-7 (Version None)
Quarter: 2010Q4

REPORT INFORMATION
  Report Type: 
  Country: None (occurrence: None)
  Receive Date: 20101221
  Receipt Date: 20100517
  Transmission Date: 20110411
  Serious: No
  Sender: FDA-Public Use
  Company Number: US-AMGEN-KDL412659

PATIENT

DRUGS (9)
  1. ENBREL [Suspect]
     Indication: PRODUCT USED FOR UNKNOWN INDICATION
     Dosage: 50 MG, QWK
     Route: 058
  2. METHOTREXATE [Concomitant]
     Dosage: 2.5 MG, UNK
  3. LEVOTHYROXINE SODIUM [Concomitant]
     Dosage: 200 A?G, UNK
  4. TOCOPHEROL CONCENTRATE CAP [Concomitant]
     Dosage: 1000 IU, UNK
  5. ERGOCALCIFEROL [Concomitant]
     Dosage: 50000 IU, UNK
  6. IBUPROFEN [Concomitant]
     Dosage: 200 MG, UNK
  7. FOLIC ACID [Concomitant]
     Dosage: 800 A?G, UNK
  8. PREDNISONE [Concomitant]
     Dosage: 10 MG, UNK
  9. ASCORBIC ACID [Concomitant]
     Dosage: 500 MG, UNK

REACTIONS (1)
  - RASH [None]
